FAERS Safety Report 6236635-3 (Version None)
Quarter: 2009Q2

REPORT INFORMATION
  Report Type: 
  Country: None (occurrence: None)
  Receive Date: 20090619
  Receipt Date: 20080919
  Transmission Date: 20091009
  Serious: No
  Sender: FDA-Public Use
  Company Number: US-ASTRAZENECA-2008UW19637

PATIENT
  Age: 87 Year
  Sex: Male
  Weight: 83.9 kg

DRUGS (1)
  1. ATACAND [Suspect]
     Route: 048
     Dates: start: 20080901

REACTIONS (2)
  - HEADACHE [None]
  - URINE OUTPUT INCREASED [None]
